FAERS Safety Report 8605170-7 (Version None)
Quarter: 2012Q3

REPORT INFORMATION
  Report Type: 
  Country: None (occurrence: None)
  Receive Date: 20120820
  Receipt Date: 20120815
  Transmission Date: 20120928
  Serious: Yes (Other)
  Sender: FDA-Public Use
  Company Number: US-PFIZER INC-2012147856

PATIENT

DRUGS (2)
  1. HEPARIN SODIUM [Suspect]
     Dosage: UNK
  2. HEPARIN [Suspect]
     Dosage: UNK

REACTIONS (2)
  - HAEMORRHAGE [None]
  - COAGULATION TIME ABNORMAL [None]
